FAERS Safety Report 7001730-8 (Version None)
Quarter: 2010Q3

REPORT INFORMATION
  Report Type: 
  Country: None (occurrence: None)
  Receive Date: 20100920
  Receipt Date: 20100824
  Transmission Date: 20110219
  Serious: Yes (Life-Threatening, Hospitalization)
  Sender: FDA-Public Use
  Company Number: GXKR2008GB04402

PATIENT
  Age: 66 Year
  Sex: Female

DRUGS (1)
  1. METOCLOPRAMIDE (NGX) [Suspect]
     Indication: VOMITING
     Route: 030

REACTIONS (1)
  - PHAEOCHROMOCYTOMA [None]
